FAERS Safety Report 4636220-0 (Version None)
Quarter: 2005Q2

REPORT INFORMATION
  Report Type: 
  Country: None (occurrence: None)
  Receive Date: 20050415
  Receipt Date: 20050413
  Transmission Date: 20051028
  Serious: Yes (Hospitalization)
  Sender: FDA-Public Use
  Company Number: PHBS2005ZA05212

PATIENT
  Age: 62 Year
  Sex: Male

DRUGS (1)
  1. TEGRETOL [Suspect]

REACTIONS (4)
  - LUNG DISORDER [None]
  - OEDEMA [None]
  - RENAL DISORDER [None]
  - STEVENS-JOHNSON SYNDROME [None]
